FAERS Safety Report 9106137 (Version 2)
Quarter: 2013Q1

REPORT INFORMATION
  Report Type: Report from Study
  Country: DE (occurrence: DE)
  Receive Date: 20130220
  Receipt Date: 20130328
  Transmission Date: 20140127
  Serious: Yes (Hospitalization)
  Sender: FDA-Public Use
  Company Number: DE-GILEAD-2013-0070156

PATIENT
  Age: 80 Year
  Sex: Male

DRUGS (11)
  1. BLINDED PLACEBO [Suspect]
     Indication: ANGINA PECTORIS
     Dosage: 750 MG, QD
     Route: 048
     Dates: start: 20121009
  2. RANOLAZINE [Suspect]
     Indication: ANGINA PECTORIS
     Dosage: 750 MG, QD
     Route: 048
     Dates: start: 20121009
  3. BLINDED PLACEBO [Suspect]
     Dosage: 1000 MG, QD
     Route: 048
  4. RANOLAZINE [Suspect]
     Dosage: 1000 MG, QD
     Route: 048
  5. BLINDED PLACEBO [Suspect]
     Dosage: 1500 MG, QD
     Route: 048
  6. RANOLAZINE [Suspect]
     Dosage: 1500 MG, QD
     Route: 048
  7. ASA 100 HEXAL [Concomitant]
     Indication: CORONARY ARTERY DISEASE
     Dosage: 100 MG, QD
     Route: 048
     Dates: start: 2003
  8. METOBETA RETARD [Concomitant]
     Indication: HYPERTENSION
     Dosage: 100 MG, QD
     Route: 048
     Dates: start: 2008
  9. DYTIDE H [Concomitant]
     Indication: HYPERTENSION
     Dosage: 75 MG, QD
     Route: 048
     Dates: start: 2008
  10. RAMILICH [Concomitant]
     Indication: HYPERTENSION
     Dosage: 5 MG, QD
     Route: 048
     Dates: start: 20100118
  11. SIMVAHEXAL [Concomitant]
     Indication: HYPERLIPIDAEMIA
     Dosage: 20 MG, UNK
     Route: 048
     Dates: start: 2009

REACTIONS (1)
  - Transient ischaemic attack [Recovered/Resolved]
